FAERS Safety Report 14157444 (Version 3)
Quarter: 2017Q4

REPORT INFORMATION
  Report Type: Report from Study
  Country: GT (occurrence: GT)
  Receive Date: 20171105
  Receipt Date: 20171225
  Transmission Date: 20180321
  Serious: Yes (Other)
  Sender: FDA-Public Use
  Company Number: PHHY2016GT008410

PATIENT
  Sex: Male
  Weight: 35 kg

DRUGS (2)
  1. FOLIC ACID. [Concomitant]
     Active Substance: FOLIC ACID
     Indication: PRODUCT USED FOR UNKNOWN INDICATION
     Dosage: 1 DF, QD
     Route: 048
  2. EXJADE [Suspect]
     Active Substance: DEFERASIROX
     Indication: BLOOD IRON INCREASED
     Dosage: 2 DF, BID (TABLETS AT THE MORNING BEFORE BREAKFAST AND 2 TABLETS AT THE AFTERNOON BEFORE DINNER)
     Route: 048

REACTIONS (4)
  - Haemoglobin decreased [Unknown]
  - Serum ferritin decreased [Recovering/Resolving]
  - Serum ferritin increased [Unknown]
  - Blood iron increased [Unknown]
